FAERS Safety Report 13518576 (Version 1)
Quarter: 2017Q2

REPORT INFORMATION
  Report Type: Spontaneous
  Country: MX (occurrence: MX)
  Receive Date: 20170505
  Receipt Date: 20170505
  Transmission Date: 20170830
  Serious: Yes (Hospitalization, Other)
  Sender: FDA-Public Use
  Company Number: MX-PFIZER INC-2017194297

PATIENT
  Sex: Female

DRUGS (1)
  1. ALDACTONE [Suspect]
     Active Substance: SPIRONOLACTONE
     Indication: CARDIAC VALVE DISEASE
     Dosage: 1 DF, DAILY

REACTIONS (2)
  - Infarction [Unknown]
  - Arrhythmia [Unknown]

NARRATIVE: CASE EVENT DATE: 2007
